FAERS Safety Report 5340709-9 (Version None)
Quarter: 2007Q2

REPORT INFORMATION
  Report Type: 
  Country: None (occurrence: None)
  Receive Date: 20070405
  Receipt Date: 20061218
  Transmission Date: 20071010
  Serious: No
  Sender: FDA-Public Use
  Company Number: US200612003066

PATIENT
  Age: 60 Year
  Sex: Male

DRUGS (10)
  1. CYMBALTA [Suspect]
     Indication: DEPRESSION
     Dosage: 30 MG, DAILY (1/D), ORAL
     Route: 048
     Dates: start: 20061208, end: 20060101
  2. AMIODARONE HCL [Concomitant]
  3. LORAZEPAM [Concomitant]
  4. LESCOL [Concomitant]
  5. TRAZODONE HCL [Concomitant]
  6. LEVOXYL [Concomitant]
  7. CLARINEX /USA/ (DESLORATADINE) [Concomitant]
  8. NASONEX [Concomitant]
  9. WARFARIN SODIUM [Concomitant]
  10. INSULIN (INSULIN) [Concomitant]

REACTIONS (3)
  - AGEUSIA [None]
  - DYSGEUSIA [None]
  - PHARYNGOLARYNGEAL PAIN [None]
